FAERS Safety Report 9698253 (Version 2)
Quarter: 2014Q1

REPORT INFORMATION
  Report Type: Spontaneous
  Country: US (occurrence: None)
  Receive Date: 20131115
  Receipt Date: 20140116
  Transmission Date: 20141002
  Serious: Yes (Other)
  Sender: FDA-Public Use
  Company Number: 2013SA116176

PATIENT
  Age: 74 Year
  Sex: Male

DRUGS (3)
  1. CORTIZONE [Suspect]
     Indication: PRURITUS
  2. CHOLESTEROL [Concomitant]
  3. ALL OTHER THERAPEUTIC PRODUCTS [Concomitant]

REACTIONS (1)
  - Diabetes mellitus [None]
